FAERS Safety Report 7239370-8 (Version None)
Quarter: 2011Q1

REPORT INFORMATION
  Report Type: 
  Country: None (occurrence: None)
  Receive Date: 20110121
  Receipt Date: 20110117
  Transmission Date: 20110831
  Serious: Yes (Other)
  Sender: FDA-Public Use
  Company Number: CA-ALLERGAN-1100672US

PATIENT
  Age: 30 Year
  Sex: Female

DRUGS (5)
  1. BOTOXA? [Suspect]
     Dosage: 100 UNITS, SINGLE
     Route: 030
     Dates: start: 20100701, end: 20100701
  2. BOTOXA? [Suspect]
     Dosage: 100 UNITS, SINGLE
     Route: 030
     Dates: start: 20100927, end: 20100927
  3. BOTOXA? [Suspect]
     Indication: MIGRAINE
     Dosage: 150 UNITS, SINGLE
     Route: 030
     Dates: start: 20110105, end: 20110105
  4. BOTOXA? [Suspect]
     Dosage: 50 UNITS, SINGLE
     Route: 030
     Dates: start: 20100809, end: 20100809
  5. MIGRAINE MEDICATION [Concomitant]
     Indication: MIGRAINE

REACTIONS (1)
  - GRAND MAL CONVULSION [None]
